FAERS Safety Report 21564049 (Version 1)
Quarter: 2022Q4

REPORT INFORMATION
  Report Type: Report from Study
  Country: US (occurrence: None)
  Receive Date: 20221108
  Receipt Date: 20221108
  Transmission Date: 20230112
  Serious: Yes (Hospitalization, Other)
  Sender: FDA-Public Use
  Company Number: US-ROCHE-3093749

PATIENT
  Age: 42 Year
  Sex: Female
  Weight: 74.8 kg

DRUGS (4)
  1. ATEZOLIZUMAB [Suspect]
     Active Substance: ATEZOLIZUMAB
     Indication: Adenocarcinoma of colon
     Dosage: OVER 30-60 MINUTES STARTING ON DAY 1 OF CYCLE 1 OR 2, LAST ADMINISTRATION DATE OF IND: 02/MAR/2021,
     Route: 041
     Dates: start: 20200212
  2. FLUOROURACIL [Suspect]
     Active Substance: FLUOROURACIL
     Indication: Adenocarcinoma of colon
     Dosage: ON DAY 1, THEN CONTINUOUSLY OVER 46 HOURS ON DAYS 1-3, MOST RECENT DOSE: 06/AUG/2020
     Route: 042
     Dates: start: 20200212
  3. LEUCOVORIN CALCIUM [Suspect]
     Active Substance: LEUCOVORIN CALCIUM
     Indication: Adenocarcinoma of colon
     Dosage: ON 06/AUG/2020, MOST RECENT DOSE
     Route: 042
     Dates: start: 20200212
  4. OXALIPLATIN [Suspect]
     Active Substance: OXALIPLATIN
     Indication: Adenocarcinoma of colon
     Dosage: ON 06/AUG/2020, MOST RECENT DOSE
     Route: 042
     Dates: start: 20200212

REACTIONS (2)
  - Lower gastrointestinal haemorrhage [Recovered/Resolved]
  - Rectal haemorrhage [Unknown]

NARRATIVE: CASE EVENT DATE: 20210212
